FAERS Safety Report 4555165-8 (Version None)
Quarter: 2004Q4

REPORT INFORMATION
  Report Type: 
  Country: None (occurrence: None)
  Receive Date: 20041217
  Receipt Date: 20040827
  Transmission Date: 20050328
  Serious: No
  Sender: FDA-Public Use
  Company Number: 2004-BP-05742BP

PATIENT
  Age: 61 Year
  Sex: Female

DRUGS (7)
  1. SPIRIVA [Suspect]
     Indication: CHRONIC OBSTRUCTIVE AIRWAYS DISEASE
     Dosage: 18 MCG (18 MCG, 18 MCG DAILY), IH
     Route: 055
     Dates: start: 20040712
  2. SINGULAIR [Concomitant]
  3. ADVAIR (SERETIDE MITE) [Concomitant]
  4. SYNTHROID [Concomitant]
  5. PRILOSEC [Concomitant]
  6. CARDIZEM [Concomitant]
  7. TOPROL-XL [Concomitant]

REACTIONS (1)
  - DYSPNOEA [None]
